FAERS Safety Report 20803935 (Version 1)
Quarter: 2022Q2

REPORT INFORMATION
  Report Type: Spontaneous
  Country: US (occurrence: US)
  Receive Date: 20220509
  Receipt Date: 20220509
  Transmission Date: 20220721
  Serious: No
  Sender: FDA-Public Use
  Company Number: US-PFIZER INC-202200442493

PATIENT
  Age: 66 Year
  Sex: Female

DRUGS (5)
  1. INLYTA [Suspect]
     Active Substance: AXITINIB
     Dosage: 3 MG, 2X/DAY
     Dates: start: 20220223
  2. PREDNISONE [Concomitant]
     Active Substance: PREDNISONE
     Dosage: UNK
  3. CARVEDILOL [Concomitant]
     Active Substance: CARVEDILOL
     Indication: Cardiovascular event prophylaxis
     Dosage: UNK
  4. VALSARTAN [Concomitant]
     Active Substance: VALSARTAN
     Indication: Cardiovascular event prophylaxis
     Dosage: UNK
  5. LENVIMA [Concomitant]
     Active Substance: LENVATINIB
     Dosage: UNK

REACTIONS (3)
  - Liver function test increased [Not Recovered/Not Resolved]
  - Dry mouth [Not Recovered/Not Resolved]
  - Sleep disorder [Not Recovered/Not Resolved]

NARRATIVE: CASE EVENT DATE: 20220101
